FAERS Safety Report 17855137 (Version 1)
Quarter: 2020Q2

REPORT INFORMATION
  Report Type: Spontaneous
  Country: US (occurrence: US)
  Receive Date: 20200603
  Receipt Date: 20200603
  Transmission Date: 20200714
  Serious: Yes (Hospitalization)
  Sender: FDA-Public Use
  Company Number: None

PATIENT
  Age: 70 Year
  Sex: Female
  Weight: 58.5 kg

DRUGS (7)
  1. LEVETIRACETAM 100 MG PO BID [Concomitant]
  2. TOPIRAMATE 50 MG PO BID [Concomitant]
  3. LACOSAMIDE 200 MG PO BID [Concomitant]
  4. METFORMIN 100 MG PO DAILY [Concomitant]
  5. PONATINIB [Suspect]
     Active Substance: PONATINIB
     Indication: CHRONIC MYELOID LEUKAEMIA
     Route: 048
     Dates: end: 20200114
  6. ASPIRIN 81 MG PO DAILY [Concomitant]
  7. SERTRALINE 25 MG PO DAILY [Concomitant]

REACTIONS (1)
  - Dry gangrene [None]

NARRATIVE: CASE EVENT DATE: 20200114
